FAERS Safety Report 4429501-7 (Version None)
Quarter: 2004Q3

REPORT INFORMATION
  Report Type: 
  Country: None (occurrence: None)
  Receive Date: 20040819
  Receipt Date: 20040816
  Transmission Date: 20050211
  Serious: Yes (Other)
  Sender: FDA-Public Use
  Company Number: GB-ROCHE-377914

PATIENT
  Age: 60 Year
  Sex: Female
  Weight: 69 kg

DRUGS (2)
  1. XENICAL [Suspect]
     Indication: OBESITY
     Route: 048
     Dates: start: 20031211, end: 20040108
  2. BENDROFLUAZIDE [Concomitant]
     Indication: HYPERTENSION
     Route: 048

REACTIONS (6)
  - ANXIETY [None]
  - DEPRESSION [None]
  - FATIGUE [None]
  - FOOD CRAVING [None]
  - INSOMNIA [None]
  - SUICIDAL IDEATION [None]
